FAERS Safety Report 17752812 (Version 1)
Quarter: 2020Q2

REPORT INFORMATION
  Report Type: Spontaneous
  Country: US (occurrence: US)
  Receive Date: 20200506
  Receipt Date: 20200506
  Transmission Date: 20200714
  Serious: No
  Sender: FDA-Public Use
  Company Number: US-DSJP-DSU-2020-112928

PATIENT

DRUGS (2)
  1. ENHERTU [Suspect]
     Active Substance: FAM-TRASTUZUMAB DERUXTECAN-NXKI
     Indication: BREAST CANCER STAGE IV
     Dosage: 5.4 MG/KG
     Route: 042
     Dates: start: 20200409, end: 20200409
  2. ENHERTU [Suspect]
     Active Substance: FAM-TRASTUZUMAB DERUXTECAN-NXKI
     Dosage: 5.4 MG/KG
     Route: 042
     Dates: start: 20200430

REACTIONS (2)
  - Product administration error [Recovered/Resolved]
  - No adverse event [Recovered/Resolved]
